FAERS Safety Report 6596418-1 (Version None)
Quarter: 2010Q1

REPORT INFORMATION
  Report Type: 
  Country: None (occurrence: None)
  Receive Date: 20100223
  Receipt Date: 20100215
  Transmission Date: 20100710
  Serious: Yes (Hospitalization, Other)
  Sender: FDA-Public Use
  Company Number: US-AMGEN-QUU392942

PATIENT
  Sex: Female

DRUGS (2)
  1. ENBREL [Suspect]
     Indication: RHEUMATOID ARTHRITIS
     Dates: start: 20081104
  2. METHOTREXATE [Concomitant]

REACTIONS (4)
  - HERNIA REPAIR [None]
  - HYSTERECTOMY [None]
  - INCISION SITE ABSCESS [None]
  - RASH PRURITIC [None]
